FAERS Safety Report 4437391-1 (Version None)
Quarter: 2004Q3

REPORT INFORMATION
  Report Type: 
  Country: None (occurrence: None)
  Receive Date: 20040726
  Receipt Date: 20040325
  Transmission Date: 20050211
  Serious: No
  Sender: FDA-Public Use
  Company Number: USA040463776

PATIENT
  Sex: Female

DRUGS (2)
  1. FORTEO [Suspect]
     Indication: OSTEOPOROSIS
     Dosage: 20 UG/ 1 DAY
     Dates: start: 20031210
  2. DOXEPIN HCL [Concomitant]

REACTIONS (2)
  - JOINT RANGE OF MOTION DECREASED [None]
  - MUSCLE CRAMP [None]
